FAERS Safety Report 6279353-8 (Version None)
Quarter: 2009Q3

REPORT INFORMATION
  Report Type: 
  Country: None (occurrence: None)
  Receive Date: 20090723
  Receipt Date: 20081105
  Transmission Date: 20100115
  Serious: No
  Sender: FDA-Public Use
  Company Number: US-AMGEN-KDL317997

PATIENT
  Age: 62 Year
  Sex: Female

DRUGS (2)
  1. PROCRIT [Suspect]
     Indication: ANAEMIA
     Dates: start: 20070101
  2. IRON [Concomitant]
     Route: 048

REACTIONS (2)
  - DECUBITUS ULCER [None]
  - THERAPEUTIC RESPONSE DECREASED [None]
